FAERS Safety Report 15831160 (Version 2)
Quarter: 2019Q2

REPORT INFORMATION
  Report Type: Spontaneous
  Country: US (occurrence: US)
  Receive Date: 20190116
  Receipt Date: 20190410
  Transmission Date: 20190711
  Serious: Yes (Hospitalization, Other)
  Sender: FDA-Public Use
  Company Number: US-PFIZER INC-2019018697

PATIENT
  Age: 49 Year
  Sex: Male
  Weight: 115.6 kg

DRUGS (8)
  1. VERSACLOZ [Suspect]
     Active Substance: CLOZAPINE
     Dosage: 400 MG, 1X/DAY (IN THE EVENING)
     Route: 048
     Dates: start: 201811
  2. SERTRALINE HCL [Suspect]
     Active Substance: SERTRALINE HYDROCHLORIDE
     Dosage: UNK
     Dates: start: 201811
  3. VERSACLOZ [Suspect]
     Active Substance: CLOZAPINE
     Dosage: 100 MG, 1X/DAY (IN THE MORNING)
     Route: 048
     Dates: start: 201811
  4. DEPAKOTE [Suspect]
     Active Substance: DIVALPROEX SODIUM
     Dosage: UNK
     Dates: end: 2018
  5. DEPAKOTE [Suspect]
     Active Substance: DIVALPROEX SODIUM
     Dosage: UNK
     Dates: start: 201811
  6. SERTRALINE HCL [Suspect]
     Active Substance: SERTRALINE HYDROCHLORIDE
     Dosage: UNK
     Dates: end: 2018
  7. VERSACLOZ [Suspect]
     Active Substance: CLOZAPINE
     Indication: SCHIZOPHRENIA
     Dosage: 100 MG, 1X/DAY (IN THE MORNING)
     Route: 048
     Dates: end: 2018
  8. VERSACLOZ [Suspect]
     Active Substance: CLOZAPINE
     Dosage: 400 MG, 1X/DAY (IN THE EVENING)
     Route: 048
     Dates: end: 2018

REACTIONS (2)
  - Schizophrenia [Recovered/Resolved]
  - Treatment noncompliance [Unknown]
